FAERS Safety Report 4905093-0 (Version None)
Quarter: 2006Q1

REPORT INFORMATION
  Report Type: 
  Country: None (occurrence: None)
  Receive Date: 20060208
  Receipt Date: 20051111
  Transmission Date: 20060701
  Serious: No
  Sender: FDA-Public Use
  Company Number: US-GLAXOSMITHKLINE-A0582152A

PATIENT
  Age: 33 Year
  Sex: Male

DRUGS (3)
  1. PAXIL [Suspect]
     Indication: PANIC DISORDER
     Dosage: 40MG UNKNOWN
     Route: 048
     Dates: start: 20030101
  2. AMBIEN [Concomitant]
  3. KLONOPIN [Concomitant]

REACTIONS (1)
  - VISUAL DISTURBANCE [None]
